FAERS Safety Report 20030542 (Version 2)
Quarter: 2021Q4

REPORT INFORMATION
  Report Type: Spontaneous
  Country: PE (occurrence: PE)
  Receive Date: 20211103
  Receipt Date: 20211126
  Transmission Date: 20220303
  Serious: Yes (Hospitalization, Other)
  Sender: FDA-Public Use
  Company Number: PE-GLAXOSMITHKLINE-PE2021AMR224085

PATIENT
  Age: 24 Year
  Sex: Male

DRUGS (6)
  1. WELLBUTRIN [Suspect]
     Active Substance: BUPROPION HYDROCHLORIDE
     Indication: Depression
     Dosage: UNK, 1 DF DAILY
     Route: 065
     Dates: end: 20210913
  2. CLONAZEPAM [Suspect]
     Active Substance: CLONAZEPAM
     Indication: Depression
     Dosage: UNK
     Dates: end: 20210913
  3. ARIPIPRAZOLE [Suspect]
     Active Substance: ARIPIPRAZOLE
     Indication: Depression
     Dosage: UNK, 1/4 DF DAILY
     Route: 065
     Dates: end: 20210913
  4. ZOLOFT [Suspect]
     Active Substance: SERTRALINE HYDROCHLORIDE
     Indication: Depression
     Dosage: UNK
     Route: 065
     Dates: start: 202108, end: 20210913
  5. VALERIANA OFFICINALIS [Suspect]
     Active Substance: VALERIAN
     Indication: Nervous system disorder
     Dosage: UNK, 1D, AT 1 UNIT DAILY (IN THE MORNING)
     Route: 065
     Dates: end: 20210913
  6. LEVOTHYROXINE SODIUM [Concomitant]
     Active Substance: LEVOTHYROXINE SODIUM
     Indication: Product used for unknown indication
     Dosage: UNK

REACTIONS (12)
  - Nausea [Recovering/Resolving]
  - Vomiting [Recovering/Resolving]
  - Suffocation feeling [Recovering/Resolving]
  - General physical health deterioration [Recovering/Resolving]
  - Polyglandular autoimmune syndrome type II [Recovering/Resolving]
  - Adrenal insufficiency [Recovering/Resolving]
  - Hypothyroidism [Recovering/Resolving]
  - Fatigue [Recovering/Resolving]
  - Condition aggravated [Recovering/Resolving]
  - Hypotension [Recovering/Resolving]
  - Adrenal gland injury [Recovering/Resolving]
  - Somnolence [Recovering/Resolving]
